FAERS Safety Report 12676358 (Version 1)
Quarter: 2016Q3

REPORT INFORMATION
  Report Type: Spontaneous
  Country: US (occurrence: None)
  Receive Date: 20160822
  Receipt Date: 20160822
  Transmission Date: 20161109
  Serious: Yes (Other)
  Sender: FDA-Public Use
  Company Number: None

PATIENT
  Age: 57 Year
  Sex: Male
  Weight: 109.77 kg

DRUGS (4)
  1. RITUXAN [Suspect]
     Active Substance: RITUXIMAB
     Indication: RHEUMATOID ARTHRITIS
     Dosage: EVERY 6 MONTHS INFUSION
     Dates: start: 20160505, end: 20160519
  2. MIRAPEX [Concomitant]
     Active Substance: PRAMIPEXOLE DIHYDROCHLORIDE
  3. ALTENOLOL [Concomitant]
  4. SYMVASTATIN [Concomitant]

REACTIONS (4)
  - Scratch [None]
  - Oedema [None]
  - Haemorrhage [None]
  - Skin disorder [None]

NARRATIVE: CASE EVENT DATE: 20160609
